FAERS Safety Report 16779773 (Version 2)
Quarter: 2020Q3

REPORT INFORMATION
  Report Type: Spontaneous
  Country: US (occurrence: US)
  Receive Date: 20190906
  Receipt Date: 20200829
  Transmission Date: 20201102
  Serious: Yes (Other)
  Sender: FDA-Public Use
  Company Number: US-GILEAD-2019-0426546

PATIENT
  Age: 45 Year
  Sex: Female

DRUGS (1)
  1. TRUVADA [Suspect]
     Active Substance: EMTRICITABINE\TENOFOVIR DISOPROXIL FUMARATE
     Indication: HIV INFECTION
     Dosage: UNK
     Route: 048
     Dates: start: 20090601, end: 2017

REACTIONS (7)
  - Anhedonia [Unknown]
  - Fibula fracture [Not Recovered/Not Resolved]
  - Pain [Unknown]
  - Multiple fractures [Unknown]
  - Emotional distress [Unknown]
  - Anxiety [Unknown]
  - Economic problem [Unknown]

NARRATIVE: CASE EVENT DATE: 20171224
